FAERS Safety Report 12242030 (Version 1)
Quarter: 2016Q2

REPORT INFORMATION
  Report Type: Spontaneous
  Country: DE (occurrence: DE)
  Receive Date: 20160406
  Receipt Date: 20160406
  Transmission Date: 20160815
  Serious: Yes (Hospitalization)
  Sender: FDA-Public Use
  Company Number: DE-ELI_LILLY_AND_COMPANY-DE201603010532

PATIENT
  Age: 37 Year
  Sex: Male
  Weight: 110 kg

DRUGS (5)
  1. AKINETON [Concomitant]
     Active Substance: BIPERIDEN HYDROCHLORIDE
     Indication: EXTRAPYRAMIDAL DISORDER
     Dosage: 4 MG, UNKNOWN
     Route: 048
     Dates: start: 20150120
  2. OLANZAPINE. [Suspect]
     Active Substance: OLANZAPINE
     Indication: SCHIZOPHRENIA
     Dosage: 20 MG, UNKNOWN
     Route: 048
     Dates: start: 20130105
  3. CITALOPRAM [Concomitant]
     Active Substance: CITALOPRAM HYDROBROMIDE
     Indication: DEPRESSION
     Dosage: 20 MG, UNKNOWN
     Route: 048
     Dates: start: 20140805
  4. ARIPIPRAZOL [Suspect]
     Active Substance: ARIPIPRAZOLE
     Indication: SCHIZOPHRENIA
     Dosage: 5 MG, UNKNOWN
     Route: 048
     Dates: start: 20121122
  5. LEVOMETHADONE [Concomitant]
     Active Substance: LEVOMETHADONE
     Indication: DRUG DEPENDENCE
     Dosage: 50 MG, UNKNOWN
     Route: 048
     Dates: start: 20090622

REACTIONS (2)
  - Cerebral infarction [Not Recovered/Not Resolved]
  - Cerebrovascular stenosis [Not Recovered/Not Resolved]

NARRATIVE: CASE EVENT DATE: 20160125
